FAERS Safety Report 7744561-3 (Version None)
Quarter: 2011Q3

REPORT INFORMATION
  Report Type: 
  Country: None (occurrence: None)
  Receive Date: 20110912
  Receipt Date: 20110908
  Transmission Date: 20111222
  Serious: Yes (Hospitalization)
  Sender: FDA-Public Use
  Company Number: FR-PFIZER INC-2011210308

PATIENT
  Age: 76 Year
  Sex: Female

DRUGS (13)
  1. ALDACTONE [Concomitant]
  2. ASPIRIN [Concomitant]
  3. OXAZEPAM [Concomitant]
  4. LAMICTAL [Concomitant]
  5. TELMISARTAN [Concomitant]
  6. TRILEPTAL [Concomitant]
  7. ROPINIROLE HYDROCHLORIDE [Concomitant]
  8. CERIS [Concomitant]
  9. ATORVASTATIN CALCIUM [Concomitant]
  10. REQUIP [Concomitant]
  11. ZOLOFT [Suspect]
     Indication: AGITATION
     Dosage: 50 MG, 1X/DAY
     Route: 048
     Dates: start: 20110414, end: 20110808
  12. COLCHICINE [Concomitant]
  13. VERATRAN [Concomitant]

REACTIONS (2)
  - ABNORMAL BEHAVIOUR [None]
  - HYPONATRAEMIA [None]
